FAERS Safety Report 4316344-8 (Version None)
Quarter: 2004Q1

REPORT INFORMATION
  Report Type: 
  Country: None (occurrence: None)
  Receive Date: 20040310
  Receipt Date: 20031024
  Transmission Date: 20041129
  Serious: Yes (Other)
  Sender: FDA-Public Use
  Company Number: HQWYE548027OCT03

PATIENT
  Age: 45 Year
  Sex: Female
  Weight: 58.57 kg

DRUGS (1)
  1. PROTONIX [Suspect]
     Indication: BARRETT'S OESOPHAGUS
     Dosage: 40 MG 2 X PER 1 DAY, ORAL
     Route: 048
     Dates: start: 20030401, end: 20030701

REACTIONS (3)
  - ARTHRALGIA [None]
  - JOINT CREPITATION [None]
  - MYALGIA [None]
